FAERS Safety Report 10166373 (Version 1)
Quarter: 2014Q2

REPORT INFORMATION
  Report Type: Spontaneous
  Country: GB (occurrence: GB)
  Receive Date: 20140512
  Receipt Date: 20140512
  Transmission Date: 20141212
  Serious: Yes (Other)
  Sender: FDA-Public Use
  Company Number: GB-MERCK-1405GBR004579

PATIENT
  Sex: Female

DRUGS (1)
  1. CANCIDAS [Suspect]
     Route: 042

REACTIONS (3)
  - Vascular catheterisation [Unknown]
  - Parenteral nutrition [Unknown]
  - Incorrect route of drug administration [Unknown]
